FAERS Safety Report 20648717 (Version 1)
Quarter: 2022Q1

REPORT INFORMATION
  Report Type: Report from Study
  Country: FR (occurrence: FR)
  Receive Date: 20220329
  Receipt Date: 20220329
  Transmission Date: 20220423
  Serious: Yes (Hospitalization)
  Sender: FDA-Public Use
  Company Number: FR-BAXTER-2022BAX000867

PATIENT
  Age: 2 Year
  Sex: Female
  Weight: 13 kg

DRUGS (17)
  1. TOPOTECAN HYDROCHLORIDE [Suspect]
     Active Substance: TOPOTECAN HYDROCHLORIDE
     Indication: Refractory cancer
     Dosage: 0.55 MG/M2 (GIVEN FOR 5 DAYS EVERY 21 DAYS)
     Route: 042
     Dates: start: 20210802, end: 20210904
  2. TOPOTECAN HYDROCHLORIDE [Suspect]
     Active Substance: TOPOTECAN HYDROCHLORIDE
     Indication: Recurrent cancer
     Dosage: 0.75 MG/M2 (GIVEN FOR 5 DAYS EVERY 21 DAYS)
     Route: 042
     Dates: start: 20210618, end: 20210716
  3. CYCLOPHOSPHAMIDE [Suspect]
     Active Substance: CYCLOPHOSPHAMIDE
     Indication: Refractory cancer
     Dosage: 183.7 MG/M2 (GIVEN FOR 5 DAYS EVERY 21 DAYS)
     Route: 042
     Dates: start: 20210802, end: 20210904
  4. CYCLOPHOSPHAMIDE [Suspect]
     Active Substance: CYCLOPHOSPHAMIDE
     Indication: Neuroblastoma
     Dosage: UNK
     Route: 065
     Dates: start: 20210421, end: 20210515
  5. CYCLOPHOSPHAMIDE [Suspect]
     Active Substance: CYCLOPHOSPHAMIDE
     Dosage: 250 MG/M2 (GIVEN FOR 5 DAYS EVERY 21 DAYS)
     Route: 042
     Dates: start: 20210618, end: 20210716
  6. VENETOCLAX [Suspect]
     Active Substance: VENETOCLAX
     Indication: Recurrent cancer
     Dosage: 120 MG, 1X/DAY
     Dates: start: 20210616, end: 20210616
  7. VENETOCLAX [Suspect]
     Active Substance: VENETOCLAX
     Indication: Refractory cancer
     Dosage: 250 MG, 1X/DAY
     Dates: start: 20210617, end: 20210906
  8. DOXORUBICIN HYDROCHLORIDE [Suspect]
     Active Substance: DOXORUBICIN HYDROCHLORIDE
     Indication: Neuroblastoma
     Dosage: UNK
     Route: 065
     Dates: start: 20210421, end: 20210515
  9. ETOPOSIDE [Suspect]
     Active Substance: ETOPOSIDE
     Indication: Neuroblastoma
     Dosage: UNK
     Route: 065
     Dates: start: 20210304, end: 20210401
  10. NUTRINI [Concomitant]
     Indication: Enteral nutrition
     Dosage: 400 ML, 1X/DAY
     Dates: start: 20210718
  11. NUTRINI [Concomitant]
     Dosage: UNK, DURING THE NIGHT
     Dates: start: 20210718, end: 20210907
  12. NUTRINI [Concomitant]
     Dosage: 240 ML, 1X/DAY
     Route: 042
     Dates: start: 20210619, end: 20210717
  13. METHYLPREDNISOLONE [Concomitant]
     Active Substance: METHYLPREDNISOLONE
     Indication: Nausea
     Dosage: 10 MG (1 AS REQUIRED)
     Dates: start: 20210819
  14. ONDANSETRON [Concomitant]
     Active Substance: ONDANSETRON
     Indication: Prophylaxis of nausea and vomiting
     Dosage: 4 MG, 1X/DAY
     Route: 042
     Dates: start: 20210616, end: 20210621
  15. ONDANSETRON [Concomitant]
     Active Substance: ONDANSETRON
     Indication: Vomiting
     Dosage: 6 MG, 1X/DAY
     Dates: start: 20210621
  16. VOGALENE [Concomitant]
     Active Substance: METOPIMAZINE
     Indication: Vomiting
     Dosage: 3 UNK, 1X/DAY
     Route: 048
     Dates: start: 20210803
  17. METHYLPREDNISOLONE [Concomitant]
     Active Substance: METHYLPREDNISOLONE
     Indication: Nausea
     Dosage: 20 MG (AS REQUIRED)
     Route: 048
     Dates: start: 20210621

REACTIONS (2)
  - Clostridium colitis [Recovered/Resolved]
  - Dehydration [Recovered/Resolved]

NARRATIVE: CASE EVENT DATE: 20210903
